FAERS Safety Report 4690928-X (Version None)
Quarter: 2005Q2

REPORT INFORMATION
  Report Type: 
  Country: None (occurrence: None)
  Receive Date: 20050610
  Receipt Date: 20050527
  Transmission Date: 20051028
  Serious: Yes (Other)
  Sender: FDA-Public Use
  Company Number: 2005MP000166

PATIENT
  Age: 59 Year
  Sex: Female

DRUGS (1)
  1. SALAGEN [Suspect]
     Indication: SICCA SYNDROME
     Dosage: 20 MG;TAB;PO;QD
     Route: 048
     Dates: start: 20041014, end: 20041029

REACTIONS (4)
  - DEHYDRATION [None]
  - HYPERHIDROSIS [None]
  - HYPOTHERMIA [None]
  - SYNCOPE [None]
